FAERS Safety Report 9991720 (Version 2)
Quarter: 2014Q3

REPORT INFORMATION
  Report Type: Spontaneous
  Country: US (occurrence: US)
  Receive Date: 20140310
  Receipt Date: 20140804
  Transmission Date: 20150326
  Serious: Yes (Hospitalization)
  Sender: FDA-Public Use
  Company Number: US-GLAXOSMITHKLINE-A1063103A

PATIENT
  Age: 37 Year
  Sex: Female

DRUGS (8)
  1. VITAMIN D [Concomitant]
     Active Substance: CHOLECALCIFEROL
  2. PLAQUENIL [Concomitant]
     Active Substance: HYDROXYCHLOROQUINE SULFATE
  3. BENLYSTA [Suspect]
     Active Substance: BELIMUMAB
     Indication: SYSTEMIC LUPUS ERYTHEMATOSUS
     Dates: start: 201205
  4. CALCIUM SUPPLEMENT [Concomitant]
     Active Substance: CALCIUM
  5. IMURAN [Concomitant]
     Active Substance: AZATHIOPRINE
  6. XARELTO [Concomitant]
     Active Substance: RIVAROXABAN
  7. METOPROLOL SUCCINATE. [Concomitant]
     Active Substance: METOPROLOL SUCCINATE
  8. PREDNISONE. [Concomitant]
     Active Substance: PREDNISONE

REACTIONS (19)
  - Immunodeficiency [Recovering/Resolving]
  - Diarrhoea [Unknown]
  - Pneumonia [Recovered/Resolved]
  - Nausea [Unknown]
  - Viral infection [Recovering/Resolving]
  - Pulmonary embolism [Unknown]
  - Vomiting [Unknown]
  - Joint swelling [Recovering/Resolving]
  - Infection [Recovering/Resolving]
  - Sinusitis [Unknown]
  - Gastritis [Unknown]
  - Pain in extremity [Unknown]
  - White blood cell count decreased [Recovering/Resolving]
  - Urinary tract infection [Recovered/Resolved]
  - Temperature intolerance [Unknown]
  - Heart rate increased [Unknown]
  - Increased upper airway secretion [Unknown]
  - Contusion [Unknown]
  - Dizziness [Unknown]

NARRATIVE: CASE EVENT DATE: 201310
